FAERS Safety Report 19581084 (Version 3)
Quarter: 2022Q1

REPORT INFORMATION
  Report Type: Spontaneous
  Country: JP (occurrence: JP)
  Receive Date: 20210719
  Receipt Date: 20220216
  Transmission Date: 20220423
  Serious: Yes (Hospitalization, Other)
  Sender: FDA-Public Use
  Company Number: JP-TAKEDA-2021TJP054337AA

PATIENT
  Age: 75 Year
  Sex: Male
  Weight: 41 kg

DRUGS (3)
  1. VECTIBIX [Suspect]
     Active Substance: PANITUMUMAB
     Indication: Rectal cancer
     Dosage: 280 MILLIGRAM, Q2WK
     Route: 041
     Dates: start: 20210423, end: 20210531
  2. DICLOFENAC SODIUM [Suspect]
     Active Substance: DICLOFENAC SODIUM
     Indication: Pain
     Dosage: 25 MILLIGRAM, TID
     Route: 054
     Dates: start: 20210614, end: 20210615
  3. MINOCYCLINE HYDROCHLORIDE [Concomitant]
     Active Substance: MINOCYCLINE HYDROCHLORIDE
     Indication: Skin disorder prophylaxis
     Dosage: 50 MILLIGRAM, BID
     Route: 048
     Dates: start: 20210422, end: 20210607

REACTIONS (2)
  - Oesophagitis [Recovered/Resolved]
  - Duodenal perforation [Recovered/Resolved]

NARRATIVE: CASE EVENT DATE: 20210607
